FAERS Safety Report 5737132-1 (Version None)
Quarter: 2008Q2

REPORT INFORMATION
  Report Type: 
  Country: None (occurrence: None)
  Receive Date: 20080513
  Receipt Date: 20080513
  Transmission Date: 20081010
  Serious: Yes (Other)
  Sender: FDA-Public Use
  Company Number: None

PATIENT
  Age: 73 Year
  Sex: Male
  Weight: 83.9154 kg

DRUGS (1)
  1. VYTORIN [Suspect]
     Indication: BLOOD CHOLESTEROL INCREASED
     Dosage: ONE PILL DAILY AFTER DINNER PO
     Route: 048
     Dates: start: 20040101, end: 20080501

REACTIONS (3)
  - ARTHRALGIA [None]
  - MYALGIA [None]
  - SLEEP DISORDER [None]
